FAERS Safety Report 9914728 (Version 6)
Quarter: 2014Q2

REPORT INFORMATION
  Report Type: Spontaneous
  Country: US (occurrence: US)
  Receive Date: 20140220
  Receipt Date: 20140430
  Transmission Date: 20141212
  Serious: Yes (Other)
  Sender: FDA-Public Use
  Company Number: US-009507513-1402USA007035

PATIENT
  Age: 24 Year
  Sex: Female
  Weight: 50.79 kg

DRUGS (1)
  1. IMPLANON [Suspect]
     Indication: CONTRACEPTION
     Dosage: SINGLE ROD, LEFT ARM
     Route: 030
     Dates: start: 20110111, end: 20140122

REACTIONS (10)
  - Surgery [Recovering/Resolving]
  - Neuralgia [Recovering/Resolving]
  - General anaesthesia [Unknown]
  - Pain in extremity [Unknown]
  - Device deployment issue [Recovered/Resolved with Sequelae]
  - Medical device complication [Recovered/Resolved with Sequelae]
  - Incorrect route of drug administration [Unknown]
  - Incorrect drug administration duration [Unknown]
  - Incision site pain [Unknown]
  - Incision site hypoaesthesia [Unknown]
